FAERS Safety Report 8200162-4 (Version None)
Quarter: 2012Q1

REPORT INFORMATION
  Report Type: 
  Country: None (occurrence: None)
  Receive Date: 20120312
  Receipt Date: 20120302
  Transmission Date: 20120608
  Serious: Yes (Hospitalization)
  Sender: FDA-Public Use
  Company Number: US-BAYER-2012-021624

PATIENT
  Age: 51 Year
  Sex: Female
  Weight: 82.54 kg

DRUGS (3)
  1. YAZ [Suspect]
     Indication: PREMENSTRUAL SYNDROME
     Dosage: UNK
     Dates: start: 20070817, end: 20080930
  2. PREDNISONE [Concomitant]
     Dosage: 01 MG, UNK
  3. YAZ [Suspect]
     Indication: MENOPAUSE

REACTIONS (9)
  - DEEP VEIN THROMBOSIS [None]
  - OEDEMA PERIPHERAL [None]
  - ANXIETY [None]
  - VEIN PAIN [None]
  - MUSCLE SPASMS [None]
  - ERYTHEMA [None]
  - VARICOSE VEIN [None]
  - FEELING HOT [None]
  - PAIN IN EXTREMITY [None]
